FAERS Safety Report 12380711 (Version 2)
Quarter: 2016Q2

REPORT INFORMATION
  Report Type: Spontaneous
  Country: US (occurrence: US)
  Receive Date: 20160518
  Receipt Date: 20160613
  Transmission Date: 20160815
  Serious: Yes (Hospitalization)
  Sender: FDA-Public Use
  Company Number: US-AXELLIA-000925

PATIENT
  Age: 45 Year
  Sex: Male
  Weight: 61.23 kg

DRUGS (4)
  1. REMODULIN [Suspect]
     Active Substance: TREPROSTINIL
     Indication: PULMONARY ARTERIAL HYPERTENSION
     Dosage: STRENGTH: 5 MG/ML?40 NG/KG/MIN (0.040 UG/KG/MIN)
     Route: 041
     Dates: start: 20141014
  2. LETAIRIS [Concomitant]
     Active Substance: AMBRISENTAN
  3. ADCIRCA [Concomitant]
     Active Substance: TADALAFIL
  4. VANCOMYCIN [Suspect]
     Active Substance: VANCOMYCIN
     Indication: PRODUCT USED FOR UNKNOWN INDICATION

REACTIONS (3)
  - Device related thrombosis [Unknown]
  - Endocarditis [Unknown]
  - Device related sepsis [Unknown]

NARRATIVE: CASE EVENT DATE: 20160306
